FAERS Safety Report 8769714 (Version 6)
Quarter: 2018Q2

REPORT INFORMATION
  Report Type: Spontaneous
  Country: US (occurrence: US)
  Receive Date: 20120905
  Receipt Date: 20180427
  Transmission Date: 20180711
  Serious: Yes (Hospitalization, Other)
  Sender: FDA-Public Use
  Company Number: US-009507513-1208USA010563

PATIENT
  Sex: Female

DRUGS (2)
  1. FOSAMAX [Suspect]
     Active Substance: ALENDRONATE SODIUM
     Indication: OSTEOPENIA
     Dosage: 70 MG, QD
     Route: 048
     Dates: start: 20050929, end: 20070107
  2. BONIVA [Suspect]
     Active Substance: IBANDRONATE SODIUM
     Indication: OSTEOPENIA
     Dosage: 150 MG, UNK
     Route: 048
     Dates: start: 200707, end: 201203

REACTIONS (28)
  - Femur fracture [Recovering/Resolving]
  - Post procedural haematoma [Unknown]
  - Vitamin D deficiency [Unknown]
  - Fibromyalgia [Unknown]
  - Osteoporosis [Unknown]
  - Low turnover osteopathy [Unknown]
  - Anxiety [Not Recovered/Not Resolved]
  - Hypothyroidism [Unknown]
  - Inappropriate schedule of drug administration [Unknown]
  - Femur fracture [Unknown]
  - Hyperlipidaemia [Unknown]
  - Gravitational oedema [Unknown]
  - Femur fracture [Unknown]
  - Fatigue [Unknown]
  - Gastrooesophageal reflux disease [Unknown]
  - Osteonecrosis [Unknown]
  - Musculoskeletal discomfort [Unknown]
  - Rhinitis allergic [Unknown]
  - Impaired healing [Not Recovered/Not Resolved]
  - Arthropathy [Unknown]
  - Depression [Not Recovered/Not Resolved]
  - Incisional drainage [Unknown]
  - Pain [Unknown]
  - Hypertension [Unknown]
  - Spinal disorder [Unknown]
  - Osteoarthritis [Unknown]
  - Cystitis [Unknown]
  - Hepatitis A [Unknown]

NARRATIVE: CASE EVENT DATE: 200509
